FAERS Safety Report 4445151-0 (Version None)
Quarter: 2004Q3

REPORT INFORMATION
  Report Type: 
  Country: None (occurrence: None)
  Receive Date: 20040907
  Receipt Date: 20040825
  Transmission Date: 20050211
  Serious: Yes (Disabling, Other)
  Sender: FDA-Public Use
  Company Number: 2004059835

PATIENT

DRUGS (2)
  1. DIFLUCAN [Suspect]
     Indication: FUNGAL INFECTION
     Dosage: INTRAVENOUS
     Route: 042
  2. METHYLPREDNISOLONE [Suspect]
     Indication: SPINAL CORD INJURY
     Dosage: 2000 MGM, INTRAVENOUS
     Route: 042

REACTIONS (4)
  - BLINDNESS [None]
  - DIALYSIS [None]
  - EYE INFECTION FUNGAL [None]
  - RENAL DISORDER [None]
